FAERS Safety Report 8213021-8 (Version None)
Quarter: 2012Q1

REPORT INFORMATION
  Report Type: 
  Country: None (occurrence: None)
  Receive Date: 20120315
  Receipt Date: 20120307
  Transmission Date: 20120608
  Serious: Yes (Hospitalization)
  Sender: FDA-Public Use
  Company Number: US-BAYER-201035091NA

PATIENT
  Age: 17 Year
  Sex: Female
  Weight: 90.703 kg

DRUGS (1)
  1. YASMIN [Suspect]
     Indication: CONTRACEPTION
     Dosage: UNK
     Route: 048
     Dates: start: 20051101, end: 20090401

REACTIONS (11)
  - SCAR [None]
  - DIARRHOEA [None]
  - ANXIETY [None]
  - MEDICAL DIET [None]
  - CHOLECYSTITIS CHRONIC [None]
  - DYSPEPSIA [None]
  - DEPRESSION [None]
  - CONSTIPATION [None]
  - ABDOMINAL DISTENSION [None]
  - FLATULENCE [None]
  - CHOLECYSTECTOMY [None]
